FAERS Safety Report 22291903 (Version 1)
Quarter: 2023Q2

REPORT INFORMATION
  Report Type: Spontaneous
  Country: US (occurrence: US)
  Receive Date: 20230507
  Receipt Date: 20230507
  Transmission Date: 20230721
  Serious: Yes (Death, Hospitalization)
  Sender: FDA-Public Use
  Company Number: US-STRIDES ARCOLAB LIMITED-2023SP006461

PATIENT
  Age: 63 Year
  Sex: Male

DRUGS (10)
  1. OLANZAPINE [Suspect]
     Active Substance: OLANZAPINE
     Indication: Bipolar disorder
     Dosage: 20 MILLIGRAM (DAILY)
     Route: 065
     Dates: start: 201912
  2. OLANZAPINE [Suspect]
     Active Substance: OLANZAPINE
     Dosage: UNK
     Route: 065
  3. OLANZAPINE [Suspect]
     Active Substance: OLANZAPINE
     Dosage: 20 MILLIGRAM (DAILY)
     Route: 065
  4. HALOPERIDOL [Suspect]
     Active Substance: HALOPERIDOL
     Indication: Agitation
     Dosage: 2 MILLIGRAM (ON FIRST HOSPITAL DAY (HD1))
     Route: 065
  5. HALOPERIDOL [Suspect]
     Active Substance: HALOPERIDOL
     Indication: Patient elopement
     Dosage: 1 MILLIGRAM (ON HD 7)
     Route: 042
  6. AVAPRITINIB [Suspect]
     Active Substance: AVAPRITINIB
     Indication: Gastrointestinal stromal tumour
     Dosage: 300 MILLIGRAM (DAILY)
     Route: 065
     Dates: start: 202003
  7. AVAPRITINIB [Suspect]
     Active Substance: AVAPRITINIB
     Dosage: 200 MILLIGRAM (DAILY)
     Route: 065
     Dates: start: 2020
  8. AVAPRITINIB [Suspect]
     Active Substance: AVAPRITINIB
     Dosage: UNK
     Route: 065
  9. AVAPRITINIB [Suspect]
     Active Substance: AVAPRITINIB
     Dosage: UNK (DOSE REDUCED FOR 2 MONTHS)
     Route: 065
  10. DASATINIB [Suspect]
     Active Substance: DASATINIB
     Indication: Gastrointestinal stromal tumour
     Dosage: UNK
     Route: 065
     Dates: start: 2001, end: 202003

REACTIONS (7)
  - Death [Fatal]
  - Mental disorder [Recovered/Resolved]
  - Memory impairment [Recovered/Resolved]
  - Confusional state [Recovered/Resolved]
  - Salivary hypersecretion [Recovered/Resolved]
  - Dysphagia [Recovered/Resolved]
  - Off label use [Unknown]
